FAERS Safety Report 21587703 (Version 3)
Quarter: 2023Q1

REPORT INFORMATION
  Report Type: Report from Study
  Country: US (occurrence: US)
  Receive Date: 20221114
  Receipt Date: 20230208
  Transmission Date: 20230417
  Serious: Yes (Other)
  Sender: FDA-Public Use
  Company Number: US-ABBVIE-4197641

PATIENT
  Sex: Male

DRUGS (1)
  1. IMBRUVICA [Suspect]
     Active Substance: IBRUTINIB
     Indication: Chronic lymphocytic leukaemia
     Route: 048
     Dates: start: 202210

REACTIONS (13)
  - Leukaemia [Unknown]
  - Myelofibrosis [Unknown]
  - Decreased appetite [Recovering/Resolving]
  - Nausea [Unknown]
  - Taste disorder [Unknown]
  - Abdominal distension [Unknown]
  - Diarrhoea [Recovered/Resolved]
  - White blood cell count increased [Recovering/Resolving]
  - Platelet count increased [Unknown]
  - Asthenia [Unknown]
  - Arthralgia [Unknown]
  - Feeling abnormal [Unknown]
  - Tearfulness [Unknown]

NARRATIVE: CASE EVENT DATE: 20220101
